FAERS Safety Report 20889419 (Version 2)
Quarter: 2022Q3

REPORT INFORMATION
  Report Type: Report from Study
  Country: CA (occurrence: CA)
  Receive Date: 20220530
  Receipt Date: 20220714
  Transmission Date: 20221027
  Serious: Yes (Other)
  Sender: FDA-Public Use
  Company Number: CA-CELLTRION INC.-2022CA007840

PATIENT

DRUGS (2)
  1. TRUXIMA [Suspect]
     Active Substance: RITUXIMAB-ABBS
     Indication: Proteinuria
     Dosage: 250 MG, WEEKLY X 4 WEEKS
     Route: 042
  2. TRUXIMA [Suspect]
     Active Substance: RITUXIMAB-ABBS
     Indication: Nephrotic syndrome

REACTIONS (4)
  - Nephrotic syndrome [Unknown]
  - Proteinuria [Unknown]
  - Insurance issue [Unknown]
  - Off label use [Unknown]
